FAERS Safety Report 4551756-9 (Version None)
Quarter: 2005Q1

REPORT INFORMATION
  Report Type: 
  Country: None (occurrence: None)
  Receive Date: 20050111
  Receipt Date: 20041229
  Transmission Date: 20050727
  Serious: Yes (Death)
  Sender: FDA-Public Use
  Company Number: 2004AP02894

PATIENT
  Age: 64 Year
  Sex: Female

DRUGS (1)
  1. ACCOLATE [Suspect]
     Dosage: 2 X 20 MG TABLETS DISPENSED FOR SEVEN DAYS TREATMENT
     Dates: start: 20010919

REACTIONS (6)
  - ALANINE AMINOTRANSFERASE INCREASED [None]
  - CHRONIC OBSTRUCTIVE PULMONARY DISEASE [None]
  - DEPRESSED LEVEL OF CONSCIOUSNESS [None]
  - HEPATIC FUNCTION ABNORMAL [None]
  - RENAL FAILURE ACUTE [None]
  - SEPTIC SHOCK [None]
